FAERS Safety Report 12263860 (Version 1)
Quarter: 2016Q2

REPORT INFORMATION
  Report Type: Spontaneous
  Country: US (occurrence: US)
  Receive Date: 20160413
  Receipt Date: 20160413
  Transmission Date: 20160815
  Serious: No
  Sender: FDA-Public Use
  Company Number: US-JNJFOC-20160325205

PATIENT
  Age: 74 Year
  Sex: Female
  Weight: 33.11 kg

DRUGS (2)
  1. TYLENOL REGULAR STRENGTH [Suspect]
     Active Substance: ACETAMINOPHEN
     Indication: ABDOMINAL PAIN
     Dosage: STARTED A COUPLE MONTHS AGO; TRIED TO TAKE 2 GEL CAPS ONCE.
     Route: 048
  2. TYLENOL REGULAR STRENGTH [Suspect]
     Active Substance: ACETAMINOPHEN
     Indication: HEADACHE
     Dosage: STARTED A COUPLE MONTHS AGO; TRIED TO TAKE 2 GEL CAPS ONCE.
     Route: 048

REACTIONS (4)
  - Product use issue [Unknown]
  - Off label use [Unknown]
  - Product difficult to swallow [Unknown]
  - Foreign body [Recovered/Resolved]
